FAERS Safety Report 16697920 (Version 2)
Quarter: 2020Q2

REPORT INFORMATION
  Report Type: Report from Study
  Country: None (occurrence: BR)
  Receive Date: 20190813
  Receipt Date: 20200528
  Transmission Date: 20200713
  Serious: Yes (Death, Hospitalization, Other)
  Sender: FDA-Public Use
  Company Number: BR-ABBVIE-19K-020-2884219-00

PATIENT
  Age: 87 Year
  Sex: Female
  Weight: 61 kg

DRUGS (1)
  1. HUMIRA [Suspect]
     Active Substance: ADALIMUMAB
     Indication: RHEUMATOID ARTHRITIS
     Route: 058
     Dates: start: 20170930, end: 20190601

REACTIONS (4)
  - Anaemia postoperative [Recovered/Resolved]
  - Bone cancer [Fatal]
  - Renal cancer [Fatal]
  - Brain neoplasm [Recovered/Resolved]

NARRATIVE: CASE EVENT DATE: 201906
